FAERS Safety Report 10039239 (Version 2)
Quarter: 2014Q1

REPORT INFORMATION
  Report Type: Spontaneous
  Country: DE (occurrence: DE)
  Receive Date: 20140326
  Receipt Date: 20140326
  Transmission Date: 20141002
  Serious: Yes (Other)
  Sender: FDA-Public Use
  Company Number: GXKR2014DE001287

PATIENT
  Age: 74 Year
  Sex: Female

DRUGS (3)
  1. LETROHEXAL [Suspect]
     Dosage: UNK
     Route: 048
  2. COAPPROVEL [Concomitant]
  3. CONCOR [Concomitant]

REACTIONS (3)
  - Myelofibrosis [Not Recovered/Not Resolved]
  - Janus kinase 2 mutation [Not Recovered/Not Resolved]
  - Thrombocytopenia [Not Recovered/Not Resolved]
